FAERS Safety Report 5303587-X (Version None)
Quarter: 2007Q2

REPORT INFORMATION
  Report Type: 
  Country: None (occurrence: None)
  Receive Date: 20070420
  Receipt Date: 20070409
  Transmission Date: 20071010
  Serious: Yes (Other)
  Sender: FDA-Public Use
  Company Number: US-PFIZER INC-2007028807

PATIENT
  Sex: Female

DRUGS (5)
  1. MEDROL [Suspect]
     Indication: ACUTE TONSILLITIS
     Dates: start: 20070301, end: 20070317
  2. FLEXERIL [Concomitant]
  3. DARVOCET [Concomitant]
  4. VICOPROFEN [Concomitant]
  5. XANAX [Concomitant]

REACTIONS (2)
  - FACE OEDEMA [None]
  - OEDEMA PERIPHERAL [None]
